FAERS Safety Report 15348679 (Version 1)
Quarter: 2018Q3

REPORT INFORMATION
  Report Type: Spontaneous
  Country: US (occurrence: US)
  Receive Date: 20180829
  Receipt Date: 20180829
  Transmission Date: 20181010
  Serious: Yes (Hospitalization)
  Sender: FDA-Public Use
  Company Number: None

PATIENT
  Age: 64 Year
  Sex: Male
  Weight: 98 kg

DRUGS (22)
  1. COLCHICINE 0.6 MG [Concomitant]
  2. PREGABALIN 150 MG [Concomitant]
     Active Substance: PREGABALIN
  3. OMEPRAZOLE 20 MG [Concomitant]
     Active Substance: OMEPRAZOLE
  4. FENOFIBRATE 145 MG [Concomitant]
     Active Substance: FENOFIBRATE
  5. FLUOCINONIDE 0.05% LOTION [Concomitant]
  6. METOPROLOL XL 50 MG [Concomitant]
  7. TORSEMIDE 20 MG [Concomitant]
  8. APIXABAN 5 MG [Concomitant]
     Active Substance: APIXABAN
  9. BENZONATATE 100 MG [Concomitant]
     Active Substance: BENZONATATE
  10. KETOCONAZOLE 2% SHAMPOO [Concomitant]
     Active Substance: KETOCONAZOLE
  11. MIGLITOL 50 MG [Concomitant]
  12. ATORVASTATIN 40 MG [Concomitant]
     Active Substance: ATORVASTATIN
  13. DOXYCYCLINE. [Concomitant]
     Active Substance: DOXYCYCLINE
  14. LIDOCAINE 5% PATCH [Concomitant]
     Active Substance: LIDOCAINE
  15. METOLAZONE 2.5 MG [Concomitant]
  16. DICLOFENAC 1% GEL [Concomitant]
     Active Substance: DICLOFENAC
  17. INFLIXIMAB 1000 MG [Concomitant]
  18. MAGNESIUM 400 MG [Concomitant]
  19. DOFETILIDE. [Suspect]
     Active Substance: DOFETILIDE
     Indication: ATRIAL FIBRILLATION
     Route: 048
  20. LOMOTIL [Concomitant]
     Active Substance: ATROPINE SULFATE\DIPHENOXYLATE HYDROCHLORIDE
  21. ESCITALOPRAM [Concomitant]
     Active Substance: ESCITALOPRAM OXALATE
  22. LOPERAMIDE 2 MG [Concomitant]

REACTIONS (13)
  - Visual impairment [None]
  - Unresponsive to stimuli [None]
  - Night sweats [None]
  - Headache [None]
  - Lethargy [None]
  - Pyrexia [None]
  - Paraesthesia [None]
  - Hypersomnia [None]
  - Hypoaesthesia [None]
  - Chills [None]
  - Electrocardiogram QT interval [None]
  - Hyperglycaemia [None]
  - Hydrocephalus [None]

NARRATIVE: CASE EVENT DATE: 20180315
